FAERS Safety Report 7768108-0 (Version None)
Quarter: 2011Q3

REPORT INFORMATION
  Report Type: 
  Country: None (occurrence: None)
  Receive Date: 20110922
  Receipt Date: 20110916
  Transmission Date: 20111222
  Serious: Yes (Death, Hospitalization)
  Sender: FDA-Public Use
  Company Number: FR-BRISTOL-MYERS SQUIBB COMPANY-16003345

PATIENT
  Age: 68 Year
  Sex: Male
  Weight: 86 kg

DRUGS (11)
  1. OXALIPLATIN [Suspect]
     Indication: COLORECTAL CANCER METASTATIC
     Dosage: RECENT INFUSION DATE:04AUG11. CUMULATIVE DOSE:340MG.
     Route: 042
     Dates: start: 20110712, end: 20110816
  2. IRINOTECAN HCL [Suspect]
     Indication: COLORECTAL CANCER METASTATIC
     Dosage: RECENT INFUSION DATE:04AUG11. CUMULATIVE DOSE:660MG.
     Route: 042
     Dates: start: 20110712, end: 20110816
  3. LERCANIDIPINE [Concomitant]
     Indication: HYPERTENSION
  4. ACETAMINOPHEN [Concomitant]
     Indication: ABDOMINAL PAIN
  5. CETUXIMAB [Suspect]
     Indication: COLORECTAL CANCER METASTATIC
     Dosage: FIRST INFUSION ON 12JUL2011 RECENT INFUSION DATE:04AUG11. CUMULATIVE DOSE:2000MG.
     Route: 042
     Dates: start: 20110712, end: 20110816
  6. LEUCOVORIN CALCIUM [Suspect]
     Indication: COLORECTAL CANCER METASTATIC
     Dosage: RECENT INFUSION DATE:04AUG11,CUMULATIVE DOSE:1660MG.
     Route: 042
     Dates: start: 20110712, end: 20110816
  7. VALSARTAN  AND HYDROCHLOROTHIAZIDE [Concomitant]
     Indication: HYPERTENSION
  8. LANSOYL [Concomitant]
     Indication: ABDOMINAL PAIN
  9. CRESTOR [Concomitant]
     Indication: HYPERCHOLESTEROLAEMIA
  10. FLUOROURACIL [Suspect]
     Indication: COLORECTAL CANCER METASTATIC
     Dosage: RECENT INF:6AUG11.CUMULATIVE DOSE:660MG (FOR BOLUS) AND 9600MG (FOR CONTINOUS).ALSO INTRAVENOUS
     Route: 040
     Dates: start: 20110712, end: 20110801
  11. PANTOPRAZOLE [Concomitant]
     Indication: ABDOMINAL PAIN

REACTIONS (5)
  - RENAL FAILURE [None]
  - NEUTROPENIA [None]
  - ANURIA [None]
  - CARCINOID TUMOUR OF THE GASTROINTESTINAL TRACT [None]
  - HAEMODYNAMIC INSTABILITY [None]
